FAERS Safety Report 7571559-0 (Version None)
Quarter: 2011Q2

REPORT INFORMATION
  Report Type: 
  Country: None (occurrence: None)
  Receive Date: 20110624
  Receipt Date: 20110616
  Transmission Date: 20111010
  Serious: Yes (Other)
  Sender: FDA-Public Use
  Company Number: IE-ABBOTT-11P-229-0723120-00

PATIENT
  Sex: Male
  Weight: 81 kg

DRUGS (8)
  1. BETALOC [Concomitant]
     Indication: HYPERTENSION
     Route: 048
  2. NEXIUM [Concomitant]
     Indication: PROPHYLAXIS
  3. OROVITE [Concomitant]
     Indication: VITAMIN SUPPLEMENTATION
     Route: 048
     Dates: start: 20081001
  4. ONE ALPHA [Concomitant]
     Indication: BONE LOSS
     Route: 048
     Dates: start: 20110501
  5. REMAGEL [Concomitant]
     Indication: PRODUCT USED FOR UNKNOWN INDICATION
     Dates: start: 20110501
  6. FOLIC ACID [Concomitant]
     Indication: PRODUCT USED FOR UNKNOWN INDICATION
     Route: 048
     Dates: start: 20080601
  7. ZEMPLAR [Suspect]
     Indication: BLOOD PARATHYROID HORMONE INCREASED
     Dates: start: 20110201, end: 20110401
  8. NEXIUM [Concomitant]
     Indication: GASTROINTESTINAL DISORDER
     Route: 048
     Dates: start: 20080601

REACTIONS (5)
  - PARAESTHESIA [None]
  - HYPOAESTHESIA [None]
  - DECREASED APPETITE [None]
  - PERIPHERAL COLDNESS [None]
  - PRURITUS GENERALISED [None]
